FAERS Safety Report 5449805-9 (Version None)
Quarter: 2007Q3

REPORT INFORMATION
  Report Type: 
  Country: None (occurrence: None)
  Receive Date: 20070912
  Receipt Date: 20070831
  Transmission Date: 20080115
  Serious: Yes (Other)
  Sender: FDA-Public Use
  Company Number: US-JNJFOC-20070901083

PATIENT
  Age: 78 Year
  Sex: Female

DRUGS (5)
  1. IBUPROFEN [Suspect]
     Indication: PAIN
  2. VICODIN [Suspect]
     Indication: PAIN
  3. FIORICET [Suspect]
     Indication: PAIN
  4. CORTISONE ACETATE TAB [Suspect]
     Indication: PAIN
  5. STEROID [Suspect]
     Indication: PAIN

REACTIONS (1)
  - SPINAL CORD DISORDER [None]
